FAERS Safety Report 25664632 (Version 2)
Quarter: 2025Q3

REPORT INFORMATION
  Report Type: Spontaneous
  Country: EU (occurrence: EU)
  Receive Date: 20250811
  Receipt Date: 20250827
  Transmission Date: 20251021
  Serious: No
  Sender: ACS DOBFAR
  Company Number: EU-SANDOZ-SDZ2025DE053553

PATIENT

DRUGS (3)
  1. MEROPENEM [Suspect]
     Active Substance: MEROPENEM
     Indication: Pneumonia
     Dosage: 1 G, TID
     Dates: start: 20250705, end: 20250709
  2. MEROPENEM [Suspect]
     Active Substance: MEROPENEM
     Indication: Pneumonia
     Dosage: 1 G, TID
     Dates: start: 20250712, end: 20250716
  3. PENICILLIN G SODIUM [Suspect]
     Active Substance: PENICILLIN G SODIUM
     Indication: Pneumonia
     Dosage: 4X DAILY ()
     Dates: start: 20250709, end: 20250712

REACTIONS (1)
  - No adverse event [Unknown]

NARRATIVE: CASE EVENT DATE: 20250701
